FAERS Safety Report 21067829 (Version 2)
Quarter: 2022Q4

REPORT INFORMATION
  Report Type: Spontaneous
  Country: US (occurrence: US)
  Receive Date: 20220712
  Receipt Date: 20221210
  Transmission Date: 20230112
  Serious: Yes (Other)
  Sender: FDA-Public Use
  Company Number: US-BRISTOL-MYERS SQUIBB COMPANY-2022-068282

PATIENT
  Age: 66 Year
  Sex: Male
  Weight: 92.7 kg

DRUGS (1)
  1. YERVOY [Suspect]
     Active Substance: IPILIMUMAB
     Indication: Product used for unknown indication
     Dosage: DOSE : 100 MG;     FREQ : EVERY 3 WEEKS
     Route: 042
     Dates: start: 20220216

REACTIONS (1)
  - Hepatotoxicity [Unknown]
